FAERS Safety Report 9746734 (Version 2)
Quarter: 2014Q1

REPORT INFORMATION
  Report Type: Spontaneous
  Country: US (occurrence: US)
  Receive Date: 20131211
  Receipt Date: 20140204
  Transmission Date: 20141002
  Serious: Yes (Other)
  Sender: FDA-Public Use
  Company Number: US-JNJFOC-20131204788

PATIENT
  Age: 45 Year
  Sex: Male
  Weight: 92.53 kg

DRUGS (3)
  1. INVOKANA [Suspect]
     Indication: TYPE 2 DIABETES MELLITUS
     Route: 048
     Dates: start: 20130808, end: 20131017
  2. METFORMIN [Concomitant]
     Indication: TYPE 2 DIABETES MELLITUS
  3. ALLOPURINOL [Concomitant]
     Indication: GOUT

REACTIONS (1)
  - Pancreatic enzymes increased [Recovered/Resolved]
